FAERS Safety Report 8470739-X (Version None)
Quarter: 2012Q2

REPORT INFORMATION
  Report Type: 
  Country: None (occurrence: None)
  Receive Date: 20120627
  Receipt Date: 20120620
  Transmission Date: 20120825
  Serious: No
  Sender: FDA-Public Use
  Company Number: US-B.I. PHARMACEUTICALS,INC./RIDGEFIELD-2012-BP-14116BP

PATIENT
  Sex: Female

DRUGS (14)
  1. EXFORGE [Concomitant]
     Indication: HYPERTENSION
     Route: 048
  2. LASIX [Concomitant]
     Indication: SWELLING
     Dosage: 20 MG
     Route: 048
  3. FLONASE [Concomitant]
     Indication: SEASONAL ALLERGY
     Route: 045
  4. CRESTOR [Concomitant]
     Indication: BLOOD CHOLESTEROL
     Dosage: 10 MG
     Route: 048
  5. OXYGEN [Concomitant]
  6. COLCHICINE [Concomitant]
     Indication: GOUT
     Dosage: 0.6 MG
     Route: 048
  7. LEVOTHYROXINE SODIUM [Concomitant]
     Indication: THYROID DISORDER
     Dosage: 200 MCG
     Route: 048
  8. METFORMIN HCL [Concomitant]
     Indication: DIABETES MELLITUS
     Dosage: 2000 MG
     Route: 048
  9. HYDRALZALINE [Concomitant]
     Indication: BLOOD PRESSURE
     Dosage: 10 MG
     Route: 048
  10. PRADAXA [Suspect]
     Indication: CEREBROVASCULAR ACCIDENT PROPHYLAXIS
     Dosage: 150 MG
     Route: 048
     Dates: start: 20110101
  11. REVATIO [Concomitant]
     Indication: PULMONARY HYPERTENSION
     Dosage: 60 MG
     Route: 048
  12. EFFEXOR [Concomitant]
     Indication: ANXIETY
     Dosage: 75 MG
     Route: 048
  13. GLIPIZIDE [Concomitant]
     Indication: DIABETES MELLITUS
     Dosage: 10 MG
     Route: 048
  14. CPAP [Concomitant]

REACTIONS (1)
  - CONDITION AGGRAVATED [None]
